FAERS Safety Report 5513111-4 (Version None)
Quarter: 2007Q4

REPORT INFORMATION
  Report Type: 
  Country: None (occurrence: None)
  Receive Date: 20071112
  Receipt Date: 20071101
  Transmission Date: 20080405
  Serious: Yes (Hospitalization)
  Sender: FDA-Public Use
  Company Number: US-JNJFOC-20071100942

PATIENT
  Sex: Female
  Weight: 54.43 kg

DRUGS (3)
  1. DURAGESIC-100 [Suspect]
     Dosage: 1X 100UG/HR PLUS 1X 50UG/HR PATCHES
     Route: 062
  2. DURAGESIC-100 [Suspect]
     Indication: PAIN
     Route: 062
  3. METHADONE HCL [Concomitant]
     Indication: PAIN
     Dosage: 5 TABLETS THREE TIMES A DAY
     Route: 048

REACTIONS (5)
  - FEELING ABNORMAL [None]
  - INAPPROPRIATE SCHEDULE OF DRUG ADMINISTRATION [None]
  - PAIN [None]
  - SHUNT OCCLUSION [None]
  - TREATMENT NONCOMPLIANCE [None]
